FAERS Safety Report 16480561 (Version 1)
Quarter: 2019Q2

REPORT INFORMATION
  Report Type: Spontaneous
  Country: US (occurrence: US)
  Receive Date: 20190626
  Receipt Date: 20190626
  Transmission Date: 20190711
  Serious: Yes (Other)
  Sender: FDA-Public Use
  Company Number: US-PFIZER INC-2018151279

PATIENT
  Age: 23 Year
  Sex: Female
  Weight: 62.59 kg

DRUGS (7)
  1. RAPAMUNE [Suspect]
     Active Substance: SIROLIMUS
     Dosage: 4 MG, DAILY
     Route: 048
  2. RAPAMUNE [Suspect]
     Active Substance: SIROLIMUS
     Indication: ANGIOMYOLIPOMA
     Dosage: UNK
     Dates: start: 20120910
  3. RAPAMUNE [Suspect]
     Active Substance: SIROLIMUS
     Dosage: 3.5 MG, ALTERNATING WITH 4 MG DAILY
     Route: 048
  4. RAPAMUNE [Suspect]
     Active Substance: SIROLIMUS
     Indication: NEOPLASM MALIGNANT
  5. RAPAMUNE [Suspect]
     Active Substance: SIROLIMUS
     Indication: NEOPLASM MALIGNANT
     Dosage: 6 MG, DAILY (180 TABLETS FOR 30 DAYS)
  6. RAPAMUNE [Suspect]
     Active Substance: SIROLIMUS
     Indication: ANGIOMYOLIPOMA
     Dosage: 3.5 MG PO ALTERNATING/4 MG PO DAILY
     Route: 048
  7. RAPAMUNE [Suspect]
     Active Substance: SIROLIMUS
     Dosage: UNK
     Dates: end: 201902

REACTIONS (5)
  - Angiomyolipoma [Unknown]
  - Product use in unapproved indication [Unknown]
  - Off label use [Unknown]
  - Pneumothorax [Unknown]
  - Prescribed overdose [Unknown]

NARRATIVE: CASE EVENT DATE: 20120912
